FAERS Safety Report 5300915-6 (Version None)
Quarter: 2007Q2

REPORT INFORMATION
  Report Type: 
  Country: None (occurrence: None)
  Receive Date: 20070418
  Receipt Date: 20070413
  Transmission Date: 20071010
  Serious: Yes (Other)
  Sender: FDA-Public Use
  Company Number: BEWYE475616APR07

PATIENT
  Age: 1 Year
  Sex: Male

DRUGS (1)
  1. REFACTO [Suspect]
     Indication: FACTOR VIII DEFICIENCY
     Dosage: NOT PROVIDED
     Dates: end: 20061030

REACTIONS (1)
  - FACTOR VIII INHIBITION [None]
